FAERS Safety Report 8440298-6 (Version None)
Quarter: 2012Q2

REPORT INFORMATION
  Report Type: 
  Country: None (occurrence: None)
  Receive Date: 20120615
  Receipt Date: 20120614
  Transmission Date: 20120825
  Serious: Yes (Hospitalization)
  Sender: FDA-Public Use
  Company Number: ES-ROCHE-1076004

PATIENT
  Age: 58 Year
  Sex: Female
  Weight: 66 kg

DRUGS (2)
  1. VEMURAFENIB [Suspect]
     Dates: start: 20120613
  2. VEMURAFENIB [Suspect]
     Indication: MALIGNANT MELANOMA
     Route: 048
     Dates: start: 20120521, end: 20120602

REACTIONS (1)
  - GASTROINTESTINAL HAEMORRHAGE [None]
